FAERS Safety Report 11597059 (Version 1)
Quarter: 2015Q4

REPORT INFORMATION
  Report Type: Spontaneous
  Country: US (occurrence: None)
  Receive Date: 20151005
  Receipt Date: 20151005
  Transmission Date: 20160304
  Serious: Yes (Disabling)
  Sender: FDA-Public Use
  Company Number: None

PATIENT
  Age: 59 Year

DRUGS (3)
  1. ESCITALOPRAM 10 MG LUPIN [Suspect]
     Active Substance: ESCITALOPRAM OXALATE
     Indication: GENERALISED ANXIETY DISORDER
     Route: 048
  2. XANAX [Concomitant]
     Active Substance: ALPRAZOLAM
  3. CONAZEPAM [Concomitant]

REACTIONS (8)
  - Impaired work ability [None]
  - Impatience [None]
  - Learning disorder [None]
  - Insomnia [None]
  - Eye pain [None]
  - Disturbance in attention [None]
  - Anxiety [None]
  - Amnesia [None]

NARRATIVE: CASE EVENT DATE: 20150828
